FAERS Safety Report 18147428 (Version 2)
Quarter: 2020Q4

REPORT INFORMATION
  Report Type: Spontaneous
  Country: ES (occurrence: ES)
  Receive Date: 20200813
  Receipt Date: 20201027
  Transmission Date: 20210113
  Serious: Yes (Other)
  Sender: FDA-Public Use
  Company Number: NVSC2020ES221177

PATIENT
  Age: 44 Year
  Sex: Female
  Weight: 145 kg

DRUGS (4)
  1. METHOTREXATE. [Suspect]
     Active Substance: METHOTREXATE
     Indication: PRODUCT USED FOR UNKNOWN INDICATION
     Dosage: MAXIMUM DOSE (UNSPECIFIED)
     Route: 065
     Dates: start: 2010
  2. IXEKIZUMAB [Suspect]
     Active Substance: IXEKIZUMAB
     Indication: PSORIATIC ARTHROPATHY
     Dosage: 80 MG
     Route: 058
     Dates: start: 20200309
  3. PREGABALIN. [Concomitant]
     Active Substance: PREGABALIN
     Indication: PRODUCT USED FOR UNKNOWN INDICATION
     Dosage: UNK
     Route: 065
  4. IXEKIZUMAB [Suspect]
     Active Substance: IXEKIZUMAB
     Indication: PSORIASIS
     Dosage: 80 MG,
     Route: 058
     Dates: start: 20200921

REACTIONS (10)
  - Weight increased [Not Recovered/Not Resolved]
  - Mobility decreased [Unknown]
  - Musculoskeletal disorder [Unknown]
  - Nerve compression [Unknown]
  - Vulvovaginal mycotic infection [Recovering/Resolving]
  - Stomatitis [Recovering/Resolving]
  - Anxiety [Unknown]
  - Pharyngitis [Recovering/Resolving]
  - Intervertebral disc protrusion [Unknown]
  - Ear infection [Recovered/Resolved]

NARRATIVE: CASE EVENT DATE: 202008
